FAERS Safety Report 8512210-2 (Version None)
Quarter: 2012Q3

REPORT INFORMATION
  Report Type: 
  Country: None (occurrence: None)
  Receive Date: 20120716
  Receipt Date: 20120705
  Transmission Date: 20120928
  Serious: Yes (Hospitalization, Other)
  Sender: FDA-Public Use
  Company Number: FR-ASTRAZENECA-2011SE62977

PATIENT
  Age: 61 Year
  Sex: Female

DRUGS (5)
  1. NEXIUM [Suspect]
     Route: 042
     Dates: start: 20110703, end: 20110808
  2. FLUCONAZOLE [Suspect]
     Dosage: 2 MG/ML
     Route: 042
     Dates: start: 20110718, end: 20110729
  3. VANCOMYCIN [Suspect]
     Indication: ENDOCARDITIS
     Route: 042
     Dates: start: 20110703, end: 20110729
  4. CLAFORAN [Suspect]
     Indication: ENDOCARDITIS
     Route: 042
     Dates: start: 20110703, end: 20110729
  5. CIPROFLOXACIN HYDROCHLORIDE [Suspect]
     Dosage: 400 MG / 200 ML PER DOSE
     Route: 042
     Dates: start: 20110718, end: 20110729

REACTIONS (2)
  - PERICARDIAL HAEMORRHAGE [None]
  - DRUG RASH WITH EOSINOPHILIA AND SYSTEMIC SYMPTOMS [None]
